FAERS Safety Report 26071679 (Version 1)
Quarter: 2025Q4

REPORT INFORMATION
  Report Type: Spontaneous
  Country: GB (occurrence: GB)
  Receive Date: 20251120
  Receipt Date: 20251120
  Transmission Date: 20260117
  Serious: Yes (Other)
  Sender: Kenvue
  Company Number: GB-KENVUE-20251104965

PATIENT

DRUGS (2)
  1. ACETAMINOPHEN [Suspect]
     Active Substance: ACETAMINOPHEN
     Indication: Drug provocation test
     Route: 065
  2. IBUPROFEN [Suspect]
     Active Substance: IBUPROFEN
     Indication: Drug provocation test
     Route: 065

REACTIONS (6)
  - NSAID exacerbated respiratory disease [Unknown]
  - Off label use [Unknown]
  - Angioedema [Unknown]
  - Anaphylactic reaction [Unknown]
  - Urticaria [Unknown]
  - Drug hypersensitivity [Unknown]
